FAERS Safety Report 18974222 (Version 2)
Quarter: 2021Q2

REPORT INFORMATION
  Report Type: Report from Study
  Country: US (occurrence: US)
  Receive Date: 20210305
  Receipt Date: 20210408
  Transmission Date: 20210717
  Serious: Yes (Hospitalization, Other)
  Sender: FDA-Public Use
  Company Number: US-JNJFOC-20201134279

PATIENT
  Age: 38 Year
  Sex: Female

DRUGS (2)
  1. SPRAVATO [Suspect]
     Active Substance: ESKETAMINE
     Indication: DEPRESSION
     Dates: start: 20201116, end: 20201116
  2. SPRAVATO [Suspect]
     Active Substance: ESKETAMINE
     Dosage: 84 MG, TOTAL 3 DOSES
     Dates: start: 20201123, end: 20201130

REACTIONS (10)
  - Seizure [Unknown]
  - Sedation [Recovered/Resolved]
  - Hypersomnia [Recovered/Resolved]
  - Overdose [Unknown]
  - Dissociation [Unknown]
  - Myoclonus [Unknown]
  - Agitation [Unknown]
  - Psychotic disorder [Unknown]
  - Substance-induced psychotic disorder [Unknown]
  - Paranoia [Unknown]

NARRATIVE: CASE EVENT DATE: 20201116
